FAERS Safety Report 26168844 (Version 1)
Quarter: 2025Q4

REPORT INFORMATION
  Report Type: Spontaneous
  Country: US (occurrence: US)
  Receive Date: 20251217
  Receipt Date: 20251217
  Transmission Date: 20260118
  Serious: No
  Sender: EPIC PHARM
  Company Number: US-EPICPHARMA-US-2025EPCSPO01218

PATIENT
  Sex: Male

DRUGS (4)
  1. RIFAMPIN [Suspect]
     Active Substance: RIFAMPIN
     Indication: Pathogen resistance
     Route: 065
  2. ETHAMBUTOL HYDROCHLORIDE [Suspect]
     Active Substance: ETHAMBUTOL HYDROCHLORIDE
     Indication: Pathogen resistance
     Route: 065
  3. CLOFAZIMINE [Suspect]
     Active Substance: CLOFAZIMINE
     Indication: Pathogen resistance
     Route: 065
  4. AMIKACIN [Suspect]
     Active Substance: AMIKACIN
     Indication: Pathogen resistance
     Dosage: LIPOSOME INHALATION SOLUTION
     Route: 065

REACTIONS (1)
  - Product use in unapproved indication [Unknown]
